FAERS Safety Report 6316298-9 (Version None)
Quarter: 2009Q3

REPORT INFORMATION
  Report Type: 
  Country: None (occurrence: None)
  Receive Date: 20090820
  Receipt Date: 20090810
  Transmission Date: 20100115
  Serious: Yes (Hospitalization, Other)
  Sender: FDA-Public Use
  Company Number: US-CELGENEUS-163-21880-09072114

PATIENT
  Sex: Female

DRUGS (2)
  1. REVLIMID [Suspect]
     Indication: LYMPHOPROLIFERATIVE DISORDER
     Route: 048
     Dates: start: 20090708, end: 20090723
  2. REVLIMID [Suspect]
     Route: 048
     Dates: start: 20090812

REACTIONS (5)
  - BEDRIDDEN [None]
  - CHONDROCALCINOSIS PYROPHOSPHATE [None]
  - DYSGEUSIA [None]
  - ELECTROLYTE IMBALANCE [None]
  - PAIN [None]
